FAERS Safety Report 5021204-3 (Version None)
Quarter: 2006Q2

REPORT INFORMATION
  Report Type: 
  Country: None (occurrence: None)
  Receive Date: 20060605
  Receipt Date: 20060523
  Transmission Date: 20061013
  Serious: Yes (Death, Other)
  Sender: FDA-Public Use
  Company Number: 2006067813

PATIENT
  Age: 58 Year
  Sex: Male

DRUGS (1)
  1. BEXTRA [Suspect]
     Indication: PAIN
     Dosage: 20 MG (20 MG, 1 IN 1 D);
     Dates: start: 20021218, end: 20031010

REACTIONS (4)
  - CARDIAC VALVE DISEASE [None]
  - CARDIOMEGALY [None]
  - DILATATION ATRIAL [None]
  - SILENT MYOCARDIAL INFARCTION [None]
